FAERS Safety Report 19198100 (Version 1)
Quarter: 2021Q2

REPORT INFORMATION
  Report Type: Report from Study
  Country: US (occurrence: US)
  Receive Date: 20210429
  Receipt Date: 20210429
  Transmission Date: 20210717
  Serious: No
  Sender: FDA-Public Use
  Company Number: US-INCYTE CORPORATION-2021IN002609

PATIENT

DRUGS (1)
  1. JAKAFI [Suspect]
     Active Substance: RUXOLITINIB
     Indication: LEUKAEMIA
     Dosage: 15 MILLIGRAM, BID
     Route: 048

REACTIONS (3)
  - White blood cell disorder [Recovering/Resolving]
  - Off label use [Unknown]
  - Weight increased [Unknown]
